FAERS Safety Report 4779621-2 (Version None)
Quarter: 2005Q3

REPORT INFORMATION
  Report Type: 
  Country: None (occurrence: None)
  Receive Date: 20050923
  Receipt Date: 20050908
  Transmission Date: 20060218
  Serious: Yes (Death)
  Sender: FDA-Public Use
  Company Number: 217503

PATIENT
  Age: 72 Year
  Sex: Female

DRUGS (4)
  1. AVASTIN [Suspect]
     Indication: COLON CANCER
     Dosage: 511.3 MG, Q3W, INTRAVENOUS
     Route: 042
     Dates: start: 20050721, end: 20050811
  2. CAPECITABINE (CAPECITABINE) [Suspect]
     Indication: COLON CANCER
     Dosage: 3600 MG, QD, ORAL
     Route: 048
     Dates: start: 20050721, end: 20050811
  3. OXALIPLATIN(OXALIPLATIN) [Suspect]
     Indication: COLON CANCER
     Dosage: 180 MG, Q3W, INTRAVENOUS
     Route: 042
     Dates: start: 20050721, end: 20050811
  4. IMODIUM [Concomitant]

REACTIONS (1)
  - CARDIAC ARREST [None]
